FAERS Safety Report 7456242-4 (Version None)
Quarter: 2011Q2

REPORT INFORMATION
  Report Type: 
  Country: None (occurrence: None)
  Receive Date: 20110503
  Receipt Date: 20110421
  Transmission Date: 20111010
  Serious: No
  Sender: FDA-Public Use
  Company Number: US-B.I. PHARMACEUTICALS,INC./RIDGEFIELD-2011-BP-11787BP

PATIENT

DRUGS (1)
  1. PRADAXA [Suspect]
     Dosage: 300 MG

REACTIONS (2)
  - DRY MOUTH [None]
  - DYSGEUSIA [None]
